FAERS Safety Report 22389951 (Version 1)
Quarter: 2023Q2

REPORT INFORMATION
  Report Type: Spontaneous
  Country: US (occurrence: None)
  Receive Date: 20230531
  Receipt Date: 20230531
  Transmission Date: 20230722
  Serious: Yes (Hospitalization)
  Sender: FDA-Public Use
  Company Number: 2023A119212

PATIENT
  Age: 67 Year
  Sex: Female

DRUGS (3)
  1. QUETIAPINE [Suspect]
     Active Substance: QUETIAPINE
     Indication: Delirium
     Route: 048
  2. THIAMINE [Concomitant]
     Active Substance: THIAMINE
  3. RAMELTEON [Concomitant]
     Active Substance: RAMELTEON

REACTIONS (2)
  - Delirium [Recovered/Resolved]
  - Off label use [Unknown]
